FAERS Safety Report 19377343 (Version 1)
Quarter: 2021Q2

REPORT INFORMATION
  Report Type: Spontaneous
  Country: CN (occurrence: CN)
  Receive Date: 20210604
  Receipt Date: 20210604
  Transmission Date: 20210717
  Serious: Yes (Other)
  Sender: FDA-Public Use
  Company Number: CN-ELI_LILLY_AND_COMPANY-CN202105011688

PATIENT
  Age: 56 Year
  Sex: Female
  Weight: 53 kg

DRUGS (2)
  1. HUMULIN 70/30 [Suspect]
     Active Substance: INSULIN HUMAN
     Dosage: 21 U, BID (MORNING AND NIGHT)
     Route: 058
  2. HUMULIN 70/30 [Suspect]
     Active Substance: INSULIN HUMAN
     Indication: DIABETES MELLITUS
     Dosage: 14 U, BID (MORNING AND NIGHT)
     Route: 058
     Dates: start: 1991

REACTIONS (8)
  - Blindness [Unknown]
  - Diabetic complication [Unknown]
  - Drug ineffective [Unknown]
  - Hypoaesthesia [Unknown]
  - Blood glucose increased [Unknown]
  - Product dose omission issue [Unknown]
  - Blood glucose increased [Unknown]
  - Skin injury [Unknown]

NARRATIVE: CASE EVENT DATE: 20210505
